FAERS Safety Report 7993451-X (Version None)
Quarter: 2011Q4

REPORT INFORMATION
  Report Type: 
  Country: None (occurrence: None)
  Receive Date: 20111219
  Receipt Date: 20110614
  Transmission Date: 20120403
  Serious: No
  Sender: FDA-Public Use
  Company Number: US-ASTRAZENECA-2011SE36224

PATIENT
  Age: 46 Year
  Sex: Male

DRUGS (2)
  1. SIMVASTATIN [Suspect]
     Route: 065
  2. CRESTOR [Suspect]
     Indication: HYPERCHOLESTEROLAEMIA
     Route: 048
     Dates: start: 20110530

REACTIONS (4)
  - OEDEMA PERIPHERAL [None]
  - MONONEUROPATHY [None]
  - PAIN IN EXTREMITY [None]
  - MUSCULAR WEAKNESS [None]
